FAERS Safety Report 4815866-0 (Version None)
Quarter: 2005Q4

REPORT INFORMATION
  Report Type: 
  Country: None (occurrence: None)
  Receive Date: 20051031
  Receipt Date: 20050722
  Transmission Date: 20060501
  Serious: Yes (Other)
  Sender: FDA-Public Use
  Company Number: US-MERCK-0507USA03860

PATIENT
  Age: 53 Year
  Sex: Female
  Weight: 105 kg

DRUGS (35)
  1. VIOXX [Suspect]
     Indication: OSTEOARTHRITIS
     Route: 048
     Dates: start: 20010723, end: 20040924
  2. VIOXX [Suspect]
     Route: 048
     Dates: start: 20030516, end: 20040923
  3. ABILIFY [Concomitant]
     Indication: BIPOLAR DISORDER
     Route: 065
     Dates: start: 20040806
  4. AMBIEN [Concomitant]
     Indication: BIPOLAR DISORDER
     Route: 065
     Dates: start: 19951229
  5. AUGMENTIN '125' [Concomitant]
     Route: 065
     Dates: start: 20020225
  6. CEPHALEXIN [Concomitant]
     Indication: COUGH
     Route: 065
     Dates: start: 20040405
  7. BEXTRA [Concomitant]
     Route: 065
     Dates: start: 20021212
  8. CLONAZEPAM [Concomitant]
     Indication: SLEEP DISORDER
     Route: 065
     Dates: start: 19961223
  9. CLOTRIMAZOLE [Concomitant]
     Indication: FUNGAL INFECTION
     Route: 065
     Dates: start: 20040719
  10. COZAAR [Concomitant]
     Indication: BLOOD PRESSURE
     Route: 065
     Dates: start: 19990513, end: 20041001
  11. CYANOCOBALAMIN [Concomitant]
     Route: 065
     Dates: start: 20010921
  12. DICYCLOMINE HYDROCHLORIDE [Concomitant]
     Indication: IRRITABLE BOWEL SYNDROME
     Route: 065
     Dates: start: 20030211
  13. FLUOXETINE [Concomitant]
     Indication: DEPRESSION
     Route: 065
     Dates: start: 20010830
  14. FUROSEMIDE [Concomitant]
     Indication: OEDEMA
     Route: 065
     Dates: start: 20030516, end: 20041001
  15. GENTAMICIN [Concomitant]
     Route: 065
     Dates: start: 20030413
  16. HYOSCYAMINE [Concomitant]
     Indication: BLADDER DISORDER
     Route: 065
     Dates: start: 20010719
  17. IBUPROFEN [Concomitant]
     Indication: PAIN
     Route: 065
     Dates: start: 20010907
  18. K-DUR 10 [Concomitant]
     Indication: MINERAL SUPPLEMENTATION
     Route: 065
     Dates: start: 20010731
  19. LITHIUM CARBONATE [Concomitant]
     Indication: DEPRESSION
     Route: 065
     Dates: start: 20030519
  20. LOTRISONE [Concomitant]
     Indication: SKIN DISORDER
     Route: 065
     Dates: start: 20030211
  21. METRONIDAZOLE [Concomitant]
     Indication: URINARY TRACT INFECTION
     Route: 065
     Dates: start: 20030117
  22. MYCOSTATIN [Concomitant]
     Indication: SKIN INFECTION
     Route: 065
     Dates: start: 20010718
  23. NEXIUM [Concomitant]
     Indication: GASTRIC DISORDER
     Route: 065
     Dates: start: 20030627
  24. NUTRACORT [Concomitant]
     Indication: RASH
     Route: 065
     Dates: start: 20010718
  25. ESTRADIOL;NORGESTIMATE [Concomitant]
     Indication: HORMONE REPLACEMENT THERAPY
     Route: 065
     Dates: start: 20010712
  26. PAXIL [Concomitant]
     Indication: DEPRESSION
     Route: 065
     Dates: start: 20030211
  27. PENTAZOCINE [Concomitant]
     Route: 065
     Dates: start: 20010907
  28. PREVACID [Concomitant]
     Indication: GASTRIC DISORDER
     Route: 065
     Dates: start: 19990727
  29. RISPERDAL [Concomitant]
     Route: 065
     Dates: start: 20021028
  30. SPECTAZOLE [Concomitant]
     Indication: RASH
     Route: 065
     Dates: start: 20010718
  31. TOPROL-XL [Concomitant]
     Indication: BLOOD PRESSURE
     Route: 065
     Dates: start: 20031208
  32. TRIAMTERENE [Concomitant]
     Indication: OEDEMA
     Route: 065
     Dates: start: 20010729
  33. URSODIOL [Concomitant]
     Indication: GASTRIC DISORDER
     Route: 065
     Dates: start: 20010806
  34. WELLBUTRIN [Concomitant]
     Indication: DEPRESSION
     Route: 065
     Dates: start: 20010622
  35. ESTRADIOL;NORGESTIMATE [Concomitant]
     Route: 065
     Dates: start: 20031230, end: 20040801

REACTIONS (1)
  - CEREBROVASCULAR ACCIDENT [None]
